FAERS Safety Report 16325413 (Version 1)
Quarter: 2019Q2

REPORT INFORMATION
  Report Type: Spontaneous
  Country: US (occurrence: US)
  Receive Date: 20190517
  Receipt Date: 20190517
  Transmission Date: 20190711
  Serious: Yes (Death, Hospitalization, Other)
  Sender: FDA-Public Use
  Company Number: US-PFIZER INC-2019208840

PATIENT
  Age: 83 Year
  Sex: Male

DRUGS (5)
  1. METFORMIN [Suspect]
     Active Substance: METFORMIN HYDROCHLORIDE
     Dosage: 500 MG, UNK
     Dates: start: 2005
  2. ADVAIR HFA [Suspect]
     Active Substance: FLUTICASONE PROPIONATE\SALMETEROL XINAFOATE
     Dosage: UNK
     Dates: start: 1995
  3. ROPINIROLE HCL [Suspect]
     Active Substance: ROPINIROLE HYDROCHLORIDE
     Dosage: 1 MG, UNK
     Dates: start: 2005
  4. LEVOTHYROXINE SODIUM. [Suspect]
     Active Substance: LEVOTHYROXINE SODIUM
     Dosage: 125 UG, UNK (125 MCG 1X)
     Dates: start: 1995
  5. METOPROLOL TARTRATE. [Suspect]
     Active Substance: METOPROLOL TARTRATE
     Dosage: UNK
     Dates: start: 1995

REACTIONS (2)
  - Lung neoplasm malignant [Fatal]
  - Acute respiratory failure [Fatal]

NARRATIVE: CASE EVENT DATE: 20180724
